FAERS Safety Report 16277776 (Version 2)
Quarter: 2019Q2

REPORT INFORMATION
  Report Type: Spontaneous
  Country: FR (occurrence: FR)
  Receive Date: 20190506
  Receipt Date: 20190607
  Transmission Date: 20190711
  Serious: Yes (Hospitalization)
  Sender: FDA-Public Use
  Company Number: FR-MYLANLABS-2019M1043034

PATIENT
  Age: 82 Year
  Sex: Male
  Weight: 70 kg

DRUGS (9)
  1. LEPTOPROL [Suspect]
     Active Substance: LEUPROLIDE ACETATE
     Indication: PROSTATE CANCER
     Dosage: 1 DOSAGE FORM (1 TRIMESTER)
     Route: 048
     Dates: start: 201804, end: 20180730
  2. ANDROCUR [Suspect]
     Active Substance: CYPROTERONE ACETATE
     Indication: PROSTATE CANCER
     Dosage: 150 MILLIGRAM, QD
     Route: 048
     Dates: start: 201804, end: 20181003
  3. DOLIPRANE [Suspect]
     Active Substance: ACETAMINOPHEN
     Indication: GAIT DISTURBANCE
     Dosage: UNK
     Route: 048
     Dates: end: 20181003
  4. TANGANIL [Suspect]
     Active Substance: ACETYLLEUCINE
     Indication: VERTIGO
     Dosage: 2 GRAM, QD
     Route: 048
     Dates: end: 20181003
  5. LANSOPRAZOLE. [Suspect]
     Active Substance: LANSOPRAZOLE
     Indication: GASTRITIS
     Dosage: 15 MILLIGRAM, QD
     Route: 048
     Dates: end: 20181003
  6. DIFFU K [Suspect]
     Active Substance: POTASSIUM CHLORIDE
     Indication: MINERAL SUPPLEMENTATION
     Dosage: 1200 MILLIGRAM, QD
     Route: 048
     Dates: end: 20181003
  7. LOSARTAN. [Suspect]
     Active Substance: LOSARTAN
     Indication: HYPERTENSION
     Dosage: 100 MILLIGRAM, QD
     Route: 048
     Dates: end: 20181003
  8. HYDROCHLOROTHIAZIDE. [Suspect]
     Active Substance: HYDROCHLOROTHIAZIDE
     Indication: HYPERTENSION
     Dosage: 25 MILLIGRAM, QD
     Route: 048
     Dates: end: 20181003
  9. HELICIDINE [Suspect]
     Active Substance: ESCARGOT
     Indication: PRODUCT USED FOR UNKNOWN INDICATION
     Dosage: UNK
     Route: 048
     Dates: end: 20181003

REACTIONS (2)
  - Hepatitis [Not Recovered/Not Resolved]
  - Hyperbilirubinaemia [Not Recovered/Not Resolved]

NARRATIVE: CASE EVENT DATE: 20181002
